FAERS Safety Report 19180485 (Version 1)
Quarter: 2021Q2

REPORT INFORMATION
  Report Type: Spontaneous
  Country: PT (occurrence: PT)
  Receive Date: 20210426
  Receipt Date: 20210426
  Transmission Date: 20210717
  Serious: Yes (Life-Threatening)
  Sender: FDA-Public Use
  Company Number: PT-PFIZER INC-2021398461

PATIENT
  Sex: Female

DRUGS (1)
  1. ZITHROMAX [Suspect]
     Active Substance: AZITHROMYCIN DIHYDRATE
     Indication: GINGIVITIS
     Dosage: 500 MG, 1X/DAY
     Route: 048
     Dates: start: 20201216, end: 20201218

REACTIONS (4)
  - Fatigue [Unknown]
  - Contusion [Unknown]
  - Heart rate increased [Unknown]
  - Acute promyelocytic leukaemia [Unknown]

NARRATIVE: CASE EVENT DATE: 20201220
